FAERS Safety Report 9280920 (Version 7)
Quarter: 2013Q3

REPORT INFORMATION
  Report Type: Spontaneous
  Country: US (occurrence: US)
  Receive Date: 20130509
  Receipt Date: 20130918
  Transmission Date: 20140515
  Serious: Yes (Hospitalization, Other)
  Sender: FDA-Public Use
  Company Number: US-PFIZER INC-2013142400

PATIENT
  Sex: Female

DRUGS (3)
  1. PANTOPRAZOLE [Suspect]
     Dosage: 10,400 MG IN TWO DAYS (^FIRST 2200 MG , SECOND 1800 MG, THIRD 2200 MG AND LAST INSTANCE 3200 MG^)
     Route: 042
     Dates: start: 20130118
  2. PANTOPRAZOLE [Suspect]
     Dosage: UNK (200MG/HR THROUGH IV. RECEIVED 12,200 MG IN TOTAL)
     Route: 042
  3. ASPIRIN [Concomitant]
     Dosage: UNK

REACTIONS (15)
  - Anger [Not Recovered/Not Resolved]
  - Aggression [Not Recovered/Not Resolved]
  - Abnormal behaviour [Not Recovered/Not Resolved]
  - Overdose [Unknown]
  - Apparent death [Not Recovered/Not Resolved]
  - Weight decreased [Not Recovered/Not Resolved]
  - Decreased appetite [Not Recovered/Not Resolved]
  - Insomnia [Not Recovered/Not Resolved]
  - Memory impairment [Not Recovered/Not Resolved]
  - Depressed mood [Not Recovered/Not Resolved]
  - Nervousness [Not Recovered/Not Resolved]
  - Vision blurred [Not Recovered/Not Resolved]
  - Anxiety [Unknown]
  - Confusional state [Unknown]
  - Fear [Unknown]
